FAERS Safety Report 9442943 (Version 2)
Quarter: 2013Q3

REPORT INFORMATION
  Report Type: Spontaneous
  Country: IT (occurrence: DE)
  Receive Date: 20130806
  Receipt Date: 20130816
  Transmission Date: 20140515
  Serious: Yes (Other)
  Sender: FDA-Public Use
  Company Number: DE-FRI-1000047508

PATIENT
  Age: 77 Year
  Sex: Female

DRUGS (5)
  1. FOSFOMYCIN [Suspect]
     Indication: CYSTITIS
     Dosage: 3000 MG
     Route: 048
     Dates: start: 20130628, end: 20130628
  2. ATACAND [Concomitant]
  3. ZELDOX [Concomitant]
  4. DETRUSITOL [Concomitant]
  5. METHIONIN [Concomitant]

REACTIONS (2)
  - Acute psychosis [Recovered/Resolved]
  - Hallucination [Recovered/Resolved]
